FAERS Safety Report 6545619-7 (Version None)
Quarter: 2010Q1

REPORT INFORMATION
  Report Type: 
  Country: None (occurrence: None)
  Receive Date: 20100119
  Receipt Date: 20100104
  Transmission Date: 20100710
  Serious: Yes (Hospitalization)
  Sender: FDA-Public Use
  Company Number: 2009000495

PATIENT
  Age: 55 Year
  Sex: Male
  Weight: 81.6475 kg

DRUGS (23)
  1. ERLOTINIB HYDROCHLORIDE [Suspect]
     Indication: NON-SMALL CELL LUNG CANCER METASTATIC
     Dosage: 150 MG, ORAL
     Route: 048
     Dates: start: 20090113, end: 20090203
  2. ARQ 197/ PLACEBO [Suspect]
     Indication: NON-SMALL CELL LUNG CANCER METASTATIC
     Dosage: 360 MG, ORAL
     Route: 048
     Dates: start: 20090113, end: 20090127
  3. ACIPHEX [Concomitant]
  4. LOTREL [Concomitant]
  5. ADVAIR HFA [Concomitant]
  6. NEURONTIN [Concomitant]
  7. ZOLOFT [Concomitant]
  8. COUMADIN [Concomitant]
  9. METFORMIN HCL [Concomitant]
  10. ZOFRAN [Concomitant]
  11. TYLOX (TYLOX) [Concomitant]
  12. LUNESTA [Concomitant]
  13. AMBIEN [Concomitant]
  14. MARINOL [Concomitant]
  15. PHENERGAN HCL [Concomitant]
  16. ARANESP [Concomitant]
  17. IMODIUM [Concomitant]
  18. PERIACTIN [Concomitant]
  19. LOMOTIL [Concomitant]
  20. CLEOCIN (CLINDAMYCIN HYDROCHLORIDE) [Concomitant]
  21. PROAIR HFA [Concomitant]
  22. HYDROCODONE POLISTIREX (HYDROCODONE POLISTIREX) [Concomitant]
  23. LOTREL [Concomitant]

REACTIONS (10)
  - BLOOD GLUCOSE INCREASED [None]
  - DIARRHOEA [None]
  - EMPHYSEMA [None]
  - HAEMATOCRIT DECREASED [None]
  - HAEMOGLOBIN DECREASED [None]
  - HEPATIC NEOPLASM MALIGNANT [None]
  - HYPOVOLAEMIA [None]
  - LUNG CONSOLIDATION [None]
  - NEUTROPENIA [None]
  - PLEURAL EFFUSION [None]
